FAERS Safety Report 23268277 (Version 1)
Quarter: 2023Q4

REPORT INFORMATION
  Report Type: Spontaneous
  Country: US (occurrence: US)
  Receive Date: 20231206
  Receipt Date: 20231206
  Transmission Date: 20240109
  Serious: Yes (Other)
  Sender: FDA-Public Use
  Company Number: US-PFIZER INC-202300426448

PATIENT
  Age: 68 Year
  Sex: Male

DRUGS (2)
  1. VELSIPITY [Suspect]
     Active Substance: ETRASIMOD ARGININE
     Dosage: 2 MG
  2. STELARA [Suspect]
     Active Substance: USTEKINUMAB
     Dosage: UNK

REACTIONS (1)
  - Swelling [Recovered/Resolved]
